FAERS Safety Report 4487882-2 (Version None)
Quarter: 2004Q4

REPORT INFORMATION
  Report Type: 
  Country: None (occurrence: None)
  Receive Date: 20041025
  Receipt Date: 20041018
  Transmission Date: 20050328
  Serious: Yes (Hospitalization)
  Sender: FDA-Public Use
  Company Number: STA-AE-04-MTX-418

PATIENT
  Age: 56 Year
  Sex: Female

DRUGS (3)
  1. RHEUMATREX [Suspect]
     Indication: RHEUMATOID ARTHRITIS
     Dosage: ORAL
     Route: 048
     Dates: end: 20010901
  2. CYCLOPHOSPHAMIDE [Suspect]
     Indication: RHEUMATOID ARTHRITIS
     Dosage: ORAL
     Route: 048
     Dates: end: 20010901
  3. BETAMETHASONE [Concomitant]

REACTIONS (7)
  - AUDITORY MEATUS EXTERNAL EROSION [None]
  - AURICULAR SWELLING [None]
  - DEPRESSED LEVEL OF CONSCIOUSNESS [None]
  - EXANTHEM [None]
  - HERPES ZOSTER [None]
  - LYMPHOCYTE COUNT DECREASED [None]
  - NECK PAIN [None]
